FAERS Safety Report 6693684-9 (Version None)
Quarter: 2010Q2

REPORT INFORMATION
  Report Type: 
  Country: None (occurrence: None)
  Receive Date: 20100423
  Receipt Date: 20100412
  Transmission Date: 20101027
  Serious: Yes (Hospitalization)
  Sender: FDA-Public Use
  Company Number: US-WYE-H14565310

PATIENT
  Sex: Female
  Weight: 72.64 kg

DRUGS (4)
  1. PRISTIQ [Suspect]
     Indication: POSTPARTUM DEPRESSION
     Route: 048
     Dates: start: 20091015
  2. PRISTIQ [Suspect]
     Indication: ANXIETY
  3. ATIVAN [Concomitant]
     Indication: ANXIETY
     Dates: start: 20100101, end: 20100101
  4. ATIVAN [Concomitant]
     Dates: start: 20100101

REACTIONS (7)
  - CHEST PAIN [None]
  - DRUG WITHDRAWAL SYNDROME [None]
  - FATIGUE [None]
  - PSYCHOTIC DISORDER [None]
  - SOMNOLENCE [None]
  - SUICIDAL IDEATION [None]
  - URTICARIA [None]
